FAERS Safety Report 19186187 (Version 3)
Quarter: 2021Q4

REPORT INFORMATION
  Report Type: Report from Study
  Country: None (occurrence: US)
  Receive Date: 20210427
  Receipt Date: 20211016
  Transmission Date: 20220303
  Serious: Yes (Hospitalization)
  Sender: FDA-Public Use
  Company Number: US-ABBVIE-21K-163-3873673-00

PATIENT
  Sex: Female
  Weight: 96.25 kg

DRUGS (5)
  1. HUMIRA [Suspect]
     Active Substance: ADALIMUMAB
     Indication: Crohn^s disease
     Route: 058
     Dates: start: 2018
  2. COVID-19 VACCINE [Concomitant]
     Indication: COVID-19 immunisation
     Dosage: MANUFACTURED: MODERNA
     Route: 030
     Dates: start: 20210115, end: 20210115
  3. COVID-19 VACCINE [Concomitant]
     Dosage: MANUFACTURED: MODERNA
     Route: 030
     Dates: start: 20210212, end: 20210212
  4. ASPIRIN [Concomitant]
     Active Substance: ASPIRIN
     Indication: Cardiac disorder
  5. ASPIRIN [Concomitant]
     Active Substance: ASPIRIN
     Indication: Coronary artery disease

REACTIONS (5)
  - Sleep apnoea syndrome [Recovering/Resolving]
  - Sinus disorder [Recovered/Resolved]
  - Lacrimation decreased [Recovered/Resolved]
  - Dry throat [Recovered/Resolved]
  - Oropharyngeal pain [Recovered/Resolved]

NARRATIVE: CASE EVENT DATE: 20190101
